FAERS Safety Report 9035951 (Version 1)
Quarter: 2013Q1

REPORT INFORMATION
  Report Type: Report from Study
  Country: US (occurrence: US)
  Receive Date: 20130129
  Receipt Date: 20130129
  Transmission Date: 20140127
  Serious: No
  Sender: FDA-Public Use
  Company Number: US-ABBOTT-12P-163-0916871-00

PATIENT
  Age: 37 Year
  Sex: Female
  Weight: 56.75 kg

DRUGS (9)
  1. HUMIRA 40 MG/0.8 ML PEN [Suspect]
     Indication: CROHN^S DISEASE
     Route: 058
     Dates: start: 201109
  2. BENTYL [Concomitant]
     Indication: CROHN^S DISEASE
  3. COMBIVENT [Concomitant]
     Indication: ASTHMA
     Dates: start: 1982
  4. IMURAN [Concomitant]
     Indication: CROHN^S DISEASE
     Dates: start: 2006
  5. PENTASA [Concomitant]
     Indication: CROHN^S DISEASE
     Dates: start: 2002
  6. NOVOLIN R [Concomitant]
     Indication: DIABETES MELLITUS
     Dates: start: 2008
  7. PRAVASTATIN [Concomitant]
     Indication: BLOOD CHOLESTEROL INCREASED
     Dates: start: 2006
  8. VITAMIN D [Concomitant]
     Indication: BONE DENSITY DECREASED
     Dates: start: 2006
  9. ZOFRAN [Concomitant]
     Indication: VOMITING

REACTIONS (5)
  - Wrist fracture [Recovered/Resolved]
  - Nasopharyngitis [Recovering/Resolving]
  - Bronchitis [Recovering/Resolving]
  - Pneumonia [Recovering/Resolving]
  - Fall [Recovered/Resolved]
